FAERS Safety Report 4631321-5 (Version None)
Quarter: 2005Q2

REPORT INFORMATION
  Report Type: 
  Country: None (occurrence: None)
  Receive Date: 20050406
  Receipt Date: 20050323
  Transmission Date: 20051028
  Serious: Yes (Hospitalization, Other)
  Sender: FDA-Public Use
  Company Number: USA050393797

PATIENT
  Age: 71 Year
  Sex: Male
  Weight: 100 kg

DRUGS (4)
  1. HUMULIN 70/30 [Suspect]
     Dates: start: 20030101
  2. HUMULIN N [Suspect]
     Dates: start: 19900101, end: 20050101
  3. ACTOS [Concomitant]
  4. INSULIN GLARGINE [Concomitant]

REACTIONS (11)
  - BLOOD GLUCOSE DECREASED [None]
  - BLOOD GLUCOSE INCREASED [None]
  - CARDIAC FUNCTION DISTURBANCE POSTOPERATIVE [None]
  - COMA [None]
  - FEELING COLD [None]
  - FLUID RETENTION [None]
  - HAEMORRHAGE [None]
  - MYOCARDIAL INFARCTION [None]
  - PAIN [None]
  - PROCEDURAL COMPLICATION [None]
  - TREMOR [None]
